FAERS Safety Report 12170700 (Version 1)
Quarter: 2016Q1

REPORT INFORMATION
  Report Type: Spontaneous
  Country: US (occurrence: US)
  Receive Date: 20160311
  Receipt Date: 20160311
  Transmission Date: 20160526
  Serious: Yes (Other)
  Sender: FDA-Public Use
  Company Number: US-BAYER-2016-025578

PATIENT
  Age: 78 Year
  Sex: Female
  Weight: 53.61 kg

DRUGS (6)
  1. BAYER GENUINE ASPIRIN [Suspect]
     Active Substance: ASPIRIN
     Dosage: UNK
  2. KLOR-CON [Concomitant]
     Active Substance: POTASSIUM CHLORIDE
  3. CITRACAL MAXIMUM [Suspect]
     Active Substance: CALCIUM CITRATE\CHOLECALCIFEROL
     Indication: THYROID DISORDER
     Dosage: 1 DF, QD
     Route: 048
     Dates: end: 20160206
  4. CITRACAL PLUS MAGNESIUM [Suspect]
     Active Substance: CALCIUM\MAGNESIUM\VITAMIN D\ZINC
     Indication: THYROID DISORDER
  5. POTASSIUM CHLORIDE. [Concomitant]
     Active Substance: POTASSIUM CHLORIDE
  6. LEVOTHYROXINE. [Concomitant]
     Active Substance: LEVOTHYROXINE

REACTIONS (5)
  - Abdominal discomfort [None]
  - Product use issue [None]
  - Abdominal pain upper [Not Recovered/Not Resolved]
  - Gastric disorder [Not Recovered/Not Resolved]
  - Underdose [None]

NARRATIVE: CASE EVENT DATE: 201512
